FAERS Safety Report 12714691 (Version 1)
Quarter: 2016Q3

REPORT INFORMATION
  Report Type: Spontaneous
  Country: US (occurrence: US)
  Receive Date: 20160905
  Receipt Date: 20160905
  Transmission Date: 20161109
  Serious: No
  Sender: FDA-Public Use
  Company Number: US-ASTRAZENECA-2016SE91291

PATIENT
  Age: 71 Year
  Sex: Female

DRUGS (2)
  1. IBRANCE [Suspect]
     Active Substance: PALBOCICLIB
     Dosage: 10.0MG UNKNOWN
     Route: 048
     Dates: start: 20160807
  2. FASLODEX [Suspect]
     Active Substance: FULVESTRANT
     Route: 030

REACTIONS (5)
  - Asthenia [Unknown]
  - Haemorrhagic diathesis [Unknown]
  - Contusion [Unknown]
  - Tremor [Unknown]
  - Nausea [Unknown]
